FAERS Safety Report 15718337 (Version 1)
Quarter: 2018Q4

REPORT INFORMATION
  Report Type: Spontaneous
  Country: US (occurrence: US)
  Receive Date: 20181213
  Receipt Date: 20181213
  Transmission Date: 20190205
  Serious: Yes (Other)
  Sender: FDA-Public Use
  Company Number: None

PATIENT
  Age: 52 Year
  Sex: Female
  Weight: 54 kg

DRUGS (3)
  1. BENZETHONIUM CHLORIDE PLUS DYCLONINE HYDROCHLORIDE [Suspect]
     Active Substance: BENZETHONIUM CHLORIDE\DYCLONINE HYDROCHLORIDE
     Indication: SKIN FISSURES
     Route: 061
     Dates: start: 20180427, end: 20180428
  2. BENZETHONIUM CHLORIDE PLUS DYCLONINE HYDROCHLORIDE [Suspect]
     Active Substance: BENZETHONIUM CHLORIDE\DYCLONINE HYDROCHLORIDE
     Indication: DRY SKIN
     Route: 061
     Dates: start: 20180427, end: 20180428
  3. VITAMIN B12 [Concomitant]
     Active Substance: CYANOCOBALAMIN

REACTIONS (2)
  - Application site fissure [None]
  - Skin exfoliation [None]

NARRATIVE: CASE EVENT DATE: 20180427
